FAERS Safety Report 10731946 (Version 1)
Quarter: 2015Q1

REPORT INFORMATION
  Report Type: Spontaneous
  Country: US (occurrence: None)
  Receive Date: 20150120
  Receipt Date: 20150120
  Transmission Date: 20150721
  Serious: Yes (Death)
  Sender: FDA-Public Use
  Company Number: 2015010112

PATIENT
  Age: 20 Year
  Sex: Male

DRUGS (3)
  1. HYDROCODONE W/ACETAMINOPHEN [Suspect]
     Active Substance: ACETAMINOPHEN\HYDROCODONE BITARTRATE
  2. OXYCODONE [Suspect]
     Active Substance: OXYCODONE
  3. CARISOPRODOL. [Suspect]
     Active Substance: CARISOPRODOL

REACTIONS (1)
  - Death [None]

NARRATIVE: CASE EVENT DATE: 2013
